FAERS Safety Report 13756992 (Version 3)
Quarter: 2017Q3

REPORT INFORMATION
  Report Type: Spontaneous
  Country: PT (occurrence: PT)
  Receive Date: 20170714
  Receipt Date: 20170911
  Transmission Date: 20171127
  Serious: Yes (Disabling)
  Sender: FDA-Public Use
  Company Number: PT-ALLERGAN-1728802US

PATIENT
  Age: 74 Year
  Sex: Female

DRUGS (7)
  1. TEGRETOL [Concomitant]
     Active Substance: CARBAMAZEPINE
     Indication: PRODUCT USED FOR UNKNOWN INDICATION
     Dosage: UNK
     Route: 065
  2. BOTOX [Suspect]
     Active Substance: ONABOTULINUMTOXINA
     Indication: TORTICOLLIS
     Dosage: 200 IU, SINGLE
     Route: 030
     Dates: start: 20170519, end: 20170519
  3. GLUCOSAMINA [Concomitant]
     Indication: PRODUCT USED FOR UNKNOWN INDICATION
     Route: 065
  4. GINKGO BILOBA [Concomitant]
     Active Substance: GINKGO
     Indication: PRODUCT USED FOR UNKNOWN INDICATION
     Dosage: UNK
     Route: 065
  5. RUPATADINE [Concomitant]
     Active Substance: RUPATADINE
     Indication: PRODUCT USED FOR UNKNOWN INDICATION
     Route: 065
  6. LORENIN [Concomitant]
     Active Substance: LORAZEPAM
     Indication: PRODUCT USED FOR UNKNOWN INDICATION
     Dosage: UNK
     Route: 065
  7. ALENDRONATE SODIUM. [Concomitant]
     Active Substance: ALENDRONATE SODIUM
     Indication: PRODUCT USED FOR UNKNOWN INDICATION
     Route: 065

REACTIONS (6)
  - Dizziness [Recovering/Resolving]
  - Neck pain [Recovering/Resolving]
  - Musculoskeletal stiffness [Recovering/Resolving]
  - Muscular weakness [Recovered/Resolved]
  - Dysphagia [Recovered/Resolved]
  - Malaise [Recovered/Resolved]

NARRATIVE: CASE EVENT DATE: 20170523
